FAERS Safety Report 8207923-6 (Version None)
Quarter: 2012Q1

REPORT INFORMATION
  Report Type: 
  Country: None (occurrence: None)
  Receive Date: 20120314
  Receipt Date: 20120312
  Transmission Date: 20120608
  Serious: No
  Sender: FDA-Public Use
  Company Number: US-PFIZER INC-2012065172

PATIENT
  Sex: Female
  Weight: 38.1 kg

DRUGS (1)
  1. DILANTIN-125 [Suspect]
     Indication: CONVULSION
     Dosage: 125 MG, 1X/DAY
     Route: 048
     Dates: end: 20120309

REACTIONS (3)
  - VOMITING [None]
  - CONFUSIONAL STATE [None]
  - CRYING [None]
